FAERS Safety Report 13477865 (Version 2)
Quarter: 2017Q3

REPORT INFORMATION
  Report Type: Report from Study
  Country: US (occurrence: US)
  Receive Date: 20170424
  Receipt Date: 20170728
  Transmission Date: 20171127
  Serious: No
  Sender: FDA-Public Use
  Company Number: US-AMGEN-USASL2017011424

PATIENT
  Age: 58 Year
  Sex: Female

DRUGS (1)
  1. REPATHA [Suspect]
     Active Substance: EVOLOCUMAB
     Indication: HYPERCHOLESTEROLAEMIA
     Dosage: 140 MG/ML, Q2WK
     Route: 065

REACTIONS (12)
  - Nasal congestion [Recovered/Resolved]
  - Retching [Unknown]
  - Abdominal discomfort [Recovering/Resolving]
  - Secretion discharge [Unknown]
  - Suffocation feeling [Unknown]
  - Paranasal sinus hypersecretion [Unknown]
  - Upper-airway cough syndrome [Recovered/Resolved]
  - Cough [Unknown]
  - Headache [Recovered/Resolved]
  - Unevaluable event [Unknown]
  - Injection site pain [Recovered/Resolved]
  - Vomiting [Recovered/Resolved]

NARRATIVE: CASE EVENT DATE: 20170216
